FAERS Safety Report 7524916-2 (Version None)
Quarter: 2011Q2

REPORT INFORMATION
  Report Type: 
  Country: None (occurrence: None)
  Receive Date: 20110606
  Receipt Date: 20110525
  Transmission Date: 20111010
  Serious: Yes (Death, Life-Threatening, Hospitalization)
  Sender: FDA-Public Use
  Company Number: JP-BAYER-200911836BYL

PATIENT
  Age: 58 Year
  Sex: Male
  Weight: 36 kg

DRUGS (9)
  1. NEXAVAR [Suspect]
     Dosage: DAILY DOSE 400 MG
     Route: 048
     Dates: start: 20090713, end: 20090908
  2. PREDNISOLONE [Suspect]
     Indication: RENAL CELL CARCINOMA
     Dosage: 10 MG (DAILY DOSE), , ORAL
     Route: 048
     Dates: start: 20090514, end: 20090527
  3. ZOMETA [Concomitant]
     Indication: PRODUCT USED FOR UNKNOWN INDICATION
     Dosage: DAILY DOSE 4 MG
     Route: 041
     Dates: start: 20090818, end: 20090908
  4. BLOOD AND RELATED PRODUCTS [Concomitant]
     Indication: ANAEMIA
     Dosage: UNK
     Route: 042
  5. UNASYN [Concomitant]
     Dosage: 1.5 G, BID
     Route: 042
     Dates: start: 20090527, end: 20090527
  6. NEXAVAR [Suspect]
     Indication: RENAL CELL CARCINOMA
     Dosage: DAILY DOSE 400 MG
     Route: 048
     Dates: start: 20090514, end: 20090527
  7. UNASYN [Concomitant]
     Indication: PNEUMONIA
     Dosage: 1.5 G, BID
     Route: 042
     Dates: start: 20090427, end: 20090501
  8. ZOMETA [Concomitant]
     Indication: HYPERCALCAEMIA
     Dosage: UNK
     Route: 041
     Dates: start: 20090709
  9. NAIXAN [Concomitant]
     Indication: TUMOUR ASSOCIATED FEVER
     Dosage: UNK
     Route: 048

REACTIONS (10)
  - DIZZINESS [None]
  - PLEURAL EFFUSION [None]
  - SEPTIC SHOCK [None]
  - LUNG INFECTION [None]
  - PNEUMONIA BACTERIAL [None]
  - NEOPLASM PROGRESSION [None]
  - SEPSIS [None]
  - RENAL CELL CARCINOMA [None]
  - FALL [None]
  - STAPHYLOCOCCAL INFECTION [None]
